FAERS Safety Report 4465466-X (Version None)
Quarter: 2004Q4

REPORT INFORMATION
  Report Type: 
  Country: None (occurrence: None)
  Receive Date: 20041004
  Receipt Date: 20040924
  Transmission Date: 20050328
  Serious: Yes (Hospitalization)
  Sender: FDA-Public Use
  Company Number: PHBS2004CH12786

PATIENT
  Age: 83 Year
  Sex: Female

DRUGS (9)
  1. LAMISIL [Suspect]
     Dosage: 250 MG, QD
     Route: 048
     Dates: start: 20040318, end: 20040810
  2. MARCOUMAR [Concomitant]
     Dosage: 3 MG/D
     Route: 048
  3. TOREM [Concomitant]
     Dosage: 50 MG/D
     Route: 048
  4. BELOC ZOK [Concomitant]
     Dosage: 25 MG/D
     Route: 048
  5. NITRODERM [Concomitant]
     Dosage: 1 DF, QD
     Route: 062
  6. TRIATEC [Concomitant]
     Dosage: 2.5 MG/D
     Route: 048
  7. ALDACTONE [Concomitant]
     Dosage: 25 MG/D
     Route: 048
  8. AMARYL [Concomitant]
     Dosage: 2 MG/D
     Route: 048
  9. NEXIUM [Concomitant]
     Dosage: 40 MG/D
     Route: 048

REACTIONS (5)
  - ACUTE CORONARY SYNDROME [None]
  - ANAEMIA [None]
  - LEUKOPENIA [None]
  - PANCYTOPENIA [None]
  - THROMBOCYTOPENIA [None]
